FAERS Safety Report 9241469 (Version 5)
Quarter: 2013Q2

REPORT INFORMATION
  Report Type: Report from Study
  Country: US (occurrence: US)
  Receive Date: 20130419
  Receipt Date: 20130528
  Transmission Date: 20140414
  Serious: Yes (Hospitalization)
  Sender: FDA-Public Use
  Company Number: US-UCBSA-083552

PATIENT
  Age: 21 Year
  Sex: Female
  Weight: 47.6 kg

DRUGS (5)
  1. CIMZIA [Suspect]
     Indication: CROHN^S DISEASE
     Dosage: DOSE: 400 MG
     Route: 058
     Dates: start: 20111118
  2. CIPRO [Concomitant]
     Indication: CROHN^S DISEASE
     Dosage: UNKNOWN DOSE
     Dates: start: 20110622
  3. ENTOCORT EC [Concomitant]
     Indication: CROHN^S DISEASE
     Dosage: DOSE: 3 MG
     Dates: start: 20110907
  4. 6-MP [Concomitant]
     Indication: CROHN^S DISEASE
     Dosage: UNKNOWN DOSE
     Dates: start: 20110601
  5. HUMIRA [Concomitant]
     Indication: CROHN^S DISEASE
     Dosage: UNKNOWN DOSE
     Dates: start: 20111118

REACTIONS (1)
  - Gastrointestinal haemorrhage [Recovered/Resolved]
